FAERS Safety Report 18639264 (Version 1)
Quarter: 2020Q4

REPORT INFORMATION
  Report Type: Spontaneous
  Country: US (occurrence: US)
  Receive Date: 20201219
  Receipt Date: 20201219
  Transmission Date: 20210114
  Serious: No
  Sender: FDA-Public Use
  Company Number: US-UNITED THERAPEUTICS-UNT-2020-017526

PATIENT
  Sex: Male
  Weight: 86.17 kg

DRUGS (3)
  1. REMODULIN [Suspect]
     Active Substance: TREPROSTINIL
     Dosage: 0.029 ?G/KG, CONTINUING
     Route: 058
     Dates: start: 2020
  2. REMODULIN [Suspect]
     Active Substance: TREPROSTINIL
     Indication: PULMONARY ARTERIAL HYPERTENSION
     Dosage: UNK, CONTINUING
     Route: 058
     Dates: start: 20200130
  3. REMODULIN [Suspect]
     Active Substance: TREPROSTINIL
     Dosage: 0.035 ?G/KG, CONTINUING
     Route: 058
     Dates: start: 2020

REACTIONS (5)
  - Infusion site pain [Unknown]
  - Infusion site erythema [Unknown]
  - Purulent discharge [Recovering/Resolving]
  - Infusion site discharge [Recovering/Resolving]
  - Cough [Unknown]

NARRATIVE: CASE EVENT DATE: 2020
